FAERS Safety Report 22313975 (Version 3)
Quarter: 2023Q2

REPORT INFORMATION
  Report Type: Report from Study
  Country: CA (occurrence: CA)
  Receive Date: 20230512
  Receipt Date: 20230626
  Transmission Date: 20230721
  Serious: Yes (Death)
  Sender: FDA-Public Use
  Company Number: CA-BAYER-2023A065833

PATIENT
  Sex: Male

DRUGS (3)
  1. EYLEA [Suspect]
     Active Substance: AFLIBERCEPT
     Indication: Age-related macular degeneration
     Dosage: 2 MG, ONCE, SOLUTION FOR INJECTION, 40 MG/ML
     Dates: start: 20180716, end: 20180716
  2. EYLEA [Suspect]
     Active Substance: AFLIBERCEPT
     Dosage: 2 UNK, SOLUTION FOR INJECTION, 40 MG/ML
     Dates: start: 20180816, end: 20180816
  3. EYLEA [Suspect]
     Active Substance: AFLIBERCEPT
     Dosage: 2 MG, ONCE, SOLUTION FOR INJECTION, 40 MG/ML
     Dates: start: 20180920, end: 20180920

REACTIONS (1)
  - Death [Fatal]
